FAERS Safety Report 25507826 (Version 6)
Quarter: 2025Q4

REPORT INFORMATION
  Report Type: Report from Study
  Country: EU (occurrence: EU)
  Receive Date: 20250703
  Receipt Date: 20251203
  Transmission Date: 20260118
  Serious: Yes (Hospitalization)
  Sender: JOHNSON AND JOHNSON
  Company Number: EU-JNJFOC-20250635867

PATIENT
  Age: 23 Year
  Sex: Female
  Weight: 115 kg

DRUGS (1)
  1. SPRAVATO [Suspect]
     Active Substance: ESKETAMINE
     Indication: Depression
     Route: 045
     Dates: start: 20240528

REACTIONS (1)
  - Depressive symptom [Recovered/Resolved]

NARRATIVE: CASE EVENT DATE: 20250627
